FAERS Safety Report 8534748 (Version 3)
Quarter: 2012Q4

REPORT INFORMATION
  Report Type: 
  Country: AR (occurrence: AR)
  Receive Date: 20120427
  Receipt Date: 20120927
  Transmission Date: 20130627
  Serious: Yes (Other)
  Sender: FDA-Public Use
  Company Number: AR-BRISTOL-MYERS SQUIBB COMPANY-16542037

PATIENT
  Age: 39 Year
  Sex: Female

DRUGS (4)
  1. ORENCIA [Suspect]
     Indication: RHEUMATOID ARTHRITIS
     Dosage: since two years ago.prev. 250mg
2 vials per month
     Route: 042
     Dates: start: 20091201, end: 20120124
  2. LEFLUNOMIDE [Concomitant]
     Dosage: 20mg tab/day
     Dates: start: 20090423, end: 20120124
  3. PILOCARPINE [Concomitant]
     Dosage: 1 DF: 1 tablet
     Dates: start: 201106, end: 20120124
  4. OMEPRAZOLE [Concomitant]
     Dates: start: 201103

REACTIONS (1)
  - Pancytopenia [Unknown]
